FAERS Safety Report 7436837-4 (Version None)
Quarter: 2011Q2

REPORT INFORMATION
  Report Type: 
  Country: None (occurrence: None)
  Receive Date: 20110426
  Receipt Date: 20110321
  Transmission Date: 20111010
  Serious: Yes (Hospitalization, Other)
  Sender: FDA-Public Use
  Company Number: US-BAYER-2010-002290

PATIENT
  Age: 25 Year
  Sex: Female
  Weight: 58.957 kg

DRUGS (3)
  1. PEPCID [Concomitant]
  2. YAZ [Suspect]
     Dosage: UNK
     Dates: start: 20090101
  3. YASMIN [Suspect]
     Dosage: UNK
     Dates: start: 20090101

REACTIONS (5)
  - CHOLECYSTITIS CHRONIC [None]
  - CHOLECYSTITIS ACUTE [None]
  - GALLBLADDER DISORDER [None]
  - CHOLELITHIASIS [None]
  - BILE DUCT STONE [None]
